FAERS Safety Report 8558990-1 (Version None)
Quarter: 2012Q3

REPORT INFORMATION
  Report Type: 
  Country: None (occurrence: None)
  Receive Date: 20120802
  Receipt Date: 20120724
  Transmission Date: 20120928
  Serious: Yes (Hospitalization)
  Sender: FDA-Public Use
  Company Number: BR-BRISTOL-MYERS SQUIBB COMPANY-16797771

PATIENT
  Age: 59 Year
  Sex: Male
  Weight: 96 kg

DRUGS (8)
  1. CISPLATIN [Suspect]
     Indication: NON-SMALL CELL LUNG CANCER
     Dosage: LAST DOSE ON 28MAY2012
     Route: 042
     Dates: start: 20120326
  2. FOLIC ACID [Concomitant]
     Dates: start: 20120314
  3. VITAMIN B-12 [Concomitant]
     Dates: start: 20120314
  4. PREDNISONE [Concomitant]
  5. PANCOF [Concomitant]
     Dates: start: 20120315
  6. PEMETREXED DISODIUM [Suspect]
     Indication: NON-SMALL CELL LUNG CANCER
     Dosage: LAST DOSE ON 28MAY2012
     Route: 042
     Dates: start: 20120326
  7. LOSARTAN POTASSIUM [Concomitant]
     Dates: start: 20120315
  8. DEXAMETHASONE [Concomitant]
     Dates: start: 20120521

REACTIONS (2)
  - STOMATITIS [None]
  - PNEUMONITIS [None]
